FAERS Safety Report 6515794-9 (Version None)
Quarter: 2009Q4

REPORT INFORMATION
  Report Type: 
  Country: None (occurrence: None)
  Receive Date: 20091223
  Receipt Date: 20091214
  Transmission Date: 20100525
  Serious: Yes (Other)
  Sender: FDA-Public Use
  Company Number: PHHY2009JP55953

PATIENT
  Age: 77 Year
  Sex: Male

DRUGS (3)
  1. ZOMETA [Suspect]
     Indication: METASTASES TO BONE
     Dosage: 4 MG PER ADMINISTRATION
     Route: 042
     Dates: end: 20090813
  2. VOLTAREN [Concomitant]
     Dosage: UNK
     Route: 048
     Dates: start: 20080625
  3. CASODEX [Concomitant]
     Dosage: 80 MG, UNK
     Route: 048
     Dates: start: 20080612

REACTIONS (3)
  - LICHEN PLANUS [None]
  - ORAL DISCOMFORT [None]
  - TOOTH EROSION [None]
